FAERS Safety Report 22245412 (Version 1)
Quarter: 2023Q2

REPORT INFORMATION
  Report Type: Spontaneous
  Country: DE (occurrence: DE)
  Receive Date: 20230424
  Receipt Date: 20230424
  Transmission Date: 20230722
  Serious: Yes (Other)
  Sender: FDA-Public Use
  Company Number: DE-drreddys-LIT/GER/23/0164301

PATIENT
  Age: 54 Year
  Sex: Male

DRUGS (8)
  1. NEVIRAPINE [Suspect]
     Active Substance: NEVIRAPINE
     Indication: HIV infection CDC category C
  2. TENOFOVIR [Suspect]
     Active Substance: TENOFOVIR
     Indication: Progressive multifocal leukoencephalopathy
  3. QUETIAPINE [Suspect]
     Active Substance: QUETIAPINE
     Indication: Head titubation
  4. RALTEGRAVIR [Suspect]
     Active Substance: RALTEGRAVIR
     Indication: HIV infection CDC category C
  5. STAVUDINE [Suspect]
     Active Substance: STAVUDINE
     Indication: HIV infection CDC category C
  6. LAMIVUDINE [Suspect]
     Active Substance: LAMIVUDINE
     Indication: Progressive multifocal leukoencephalopathy
  7. EFAVIRENZ [Suspect]
     Active Substance: EFAVIRENZ
     Indication: Progressive multifocal leukoencephalopathy
  8. PRIMIDONE [Suspect]
     Active Substance: PRIMIDONE
     Indication: Head titubation

REACTIONS (5)
  - Hemiparesis [Unknown]
  - Progressive multifocal leukoencephalopathy [Unknown]
  - Head titubation [Recovering/Resolving]
  - Drug ineffective for unapproved indication [Unknown]
  - Product use in unapproved indication [Unknown]
